FAERS Safety Report 21477564 (Version 2)
Quarter: 2022Q4

REPORT INFORMATION
  Report Type: Report from Study
  Country: US (occurrence: US)
  Receive Date: 20221019
  Receipt Date: 20221122
  Transmission Date: 20230113
  Serious: No
  Sender: FDA-Public Use
  Company Number: US-ABBVIE-4147781

PATIENT
  Sex: Female

DRUGS (2)
  1. IMBRUVICA [Suspect]
     Active Substance: IBRUTINIB
     Indication: Diffuse large B-cell lymphoma
     Dosage: TAKE 1 TABLET WITH ONE 280 MILLIGRAM TABLET (840MG TOTAL) BY MOUTH ONCE DAILY WITH A FULL GLASS O...
     Route: 048
  2. IMBRUVICA [Suspect]
     Active Substance: IBRUTINIB
     Indication: Diffuse large B-cell lymphoma
     Dosage: TAKE 1 TABLET WITH ONE 560MG TABLET (840MG TOTAL) BY MOUTH ONCE DAILY WITH A FULL GLASS OF WATER?...
     Route: 048
     Dates: start: 20221109

REACTIONS (2)
  - Fatigue [Unknown]
  - Asthenia [Not Recovered/Not Resolved]
